FAERS Safety Report 5646204-1 (Version None)
Quarter: 2008Q1

REPORT INFORMATION
  Report Type: 
  Country: None (occurrence: None)
  Receive Date: 20080227
  Receipt Date: 20080220
  Transmission Date: 20080703
  Serious: Yes (Death)
  Sender: FDA-Public Use
  Company Number: 087-20785-08021426

PATIENT
  Age: 9 Year
  Sex: Male

DRUGS (5)
  1. THALOMID [Suspect]
     Indication: GRAFT VERSUS HOST DISEASE
     Dosage: ORAL
     Route: 048
  2. ANTIBIOTICS (ANTIBIOTICS) [Concomitant]
  3. METHOTREXATE [Concomitant]
  4. TACROLIMUS [Concomitant]
  5. PREDNISOLONE [Concomitant]

REACTIONS (6)
  - ABDOMINAL PAIN [None]
  - BLOOD CREATINE PHOSPHOKINASE INCREASED [None]
  - MYOCARDITIS [None]
  - PYREXIA [None]
  - VENTRICULAR FIBRILLATION [None]
  - VOMITING [None]
